FAERS Safety Report 17715848 (Version 2)
Quarter: 2020Q2

REPORT INFORMATION
  Report Type: Spontaneous
  Country: CO (occurrence: CO)
  Receive Date: 20200427
  Receipt Date: 20200506
  Transmission Date: 20200714
  Serious: Yes (Hospitalization, Other)
  Sender: FDA-Public Use
  Company Number: CO-ROCHE-2588379

PATIENT
  Age: 10 Year
  Sex: Male
  Weight: 52 kg

DRUGS (1)
  1. HEMLIBRA [Suspect]
     Active Substance: EMICIZUMAB-KXWH
     Indication: FACTOR VIII DEFICIENCY
     Dosage: FREQUENCY UNKNOWN.
     Route: 058
     Dates: start: 20200410

REACTIONS (2)
  - Blood loss anaemia [Recovering/Resolving]
  - Mouth haemorrhage [Recovering/Resolving]
